FAERS Safety Report 24250340 (Version 5)
Quarter: 2024Q4

REPORT INFORMATION
  Report Type: Spontaneous
  Country: US (occurrence: US)
  Receive Date: 20240826
  Receipt Date: 20241206
  Transmission Date: 20250114
  Serious: No
  Sender: CALLIDITAS THERAPEUTICS AB
  Company Number: US-Calliditas-2024CAL01571

PATIENT
  Age: 37 Year
  Sex: Male

DRUGS (5)
  1. TARPEYO [Suspect]
     Active Substance: BUDESONIDE
     Indication: IgA nephropathy
     Route: 048
     Dates: start: 20240622
  2. JARDIANCE [Concomitant]
     Active Substance: EMPAGLIFLOZIN
  3. FISH OIL [Concomitant]
     Active Substance: FISH OIL
  4. LISINOPRIL [Concomitant]
     Active Substance: LISINOPRIL
  5. CHOLECALCIFEROL [Concomitant]
     Active Substance: CHOLECALCIFEROL

REACTIONS (6)
  - COVID-19 [Unknown]
  - Gastrooesophageal reflux disease [Unknown]
  - Dyspepsia [Unknown]
  - Urethral pain [Unknown]
  - Pollakiuria [Unknown]
  - Product dose omission issue [Recovered/Resolved]

NARRATIVE: CASE EVENT DATE: 20240801
